FAERS Safety Report 6304716-1 (Version None)
Quarter: 2009Q3

REPORT INFORMATION
  Report Type: 
  Country: None (occurrence: None)
  Receive Date: 20090811
  Receipt Date: 20090806
  Transmission Date: 20100115
  Serious: Yes (Hospitalization, Other)
  Sender: FDA-Public Use
  Company Number: A0799972A

PATIENT
  Age: 60 Year
  Sex: Female
  Weight: 82.5 kg

DRUGS (3)
  1. LAPATINIB [Suspect]
     Indication: BREAST CANCER
     Dosage: 1000MG PER DAY
     Route: 048
     Dates: start: 20090309, end: 20090712
  2. PACLITAXEL [Suspect]
     Indication: BREAST CANCER
     Dosage: 80MGM2 WEEKLY
     Route: 042
     Dates: start: 20090309
  3. TRASTUZUMAB [Suspect]
     Indication: BREAST CANCER
     Dosage: 2MGK WEEKLY
     Route: 042
     Dates: start: 20090309, end: 20090713

REACTIONS (12)
  - DECREASED APPETITE [None]
  - DIARRHOEA [None]
  - DYSPNOEA EXERTIONAL [None]
  - ERYTHEMA [None]
  - FATIGUE [None]
  - LUNG INFILTRATION [None]
  - NEUROPATHY PERIPHERAL [None]
  - PLEURITIC PAIN [None]
  - PNEUMONITIS [None]
  - PYREXIA [None]
  - RASH [None]
  - SKIN EXFOLIATION [None]
